FAERS Safety Report 15274681 (Version 3)
Quarter: 2019Q4

REPORT INFORMATION
  Report Type: Report from Study
  Country: None (occurrence: BR)
  Receive Date: 20180814
  Receipt Date: 20191001
  Transmission Date: 20200122
  Serious: Yes (Hospitalization, Other)
  Sender: FDA-Public Use
  Company Number: BR-ABBVIE-18K-020-2228539-00

PATIENT
  Age: 38 Year
  Sex: Female
  Weight: 79 kg

DRUGS (3)
  1. HUMIRA [Suspect]
     Active Substance: ADALIMUMAB
     Route: 058
     Dates: start: 2018
  2. HUMIRA [Suspect]
     Active Substance: ADALIMUMAB
     Indication: AXIAL SPONDYLOARTHRITIS
     Route: 058
     Dates: start: 20170801
  3. HUMIRA [Suspect]
     Active Substance: ADALIMUMAB
     Indication: AXIAL SPONDYLOARTHRITIS
     Route: 058

REACTIONS (34)
  - Cartilage atrophy [Not Recovered/Not Resolved]
  - Insomnia [Unknown]
  - Onychoclasis [Recovered/Resolved]
  - Allergic bronchitis [Recovered/Resolved]
  - Weight decreased [Unknown]
  - Joint noise [Not Recovered/Not Resolved]
  - Listless [Recovering/Resolving]
  - Back pain [Not Recovered/Not Resolved]
  - Sinusitis [Recovered/Resolved]
  - Dyspnoea [Recovered/Resolved]
  - Pharyngeal disorder [Unknown]
  - Influenza [Recovered/Resolved]
  - Spinal pain [Not Recovered/Not Resolved]
  - Anxiety [Recovered/Resolved]
  - Anxiety [Recovering/Resolving]
  - Alopecia [Not Recovered/Not Resolved]
  - Musculoskeletal pain [Not Recovered/Not Resolved]
  - Pain in extremity [Recovered/Resolved]
  - Asthenia [Recovered/Resolved]
  - Vision blurred [Recovered/Resolved]
  - Coccydynia [Not Recovered/Not Resolved]
  - Influenza [Recovered/Resolved]
  - Onychoclasis [Not Recovered/Not Resolved]
  - Influenza [Recovered/Resolved]
  - Pyrexia [Recovering/Resolving]
  - Inflammation [Not Recovered/Not Resolved]
  - Catarrh [Recovered/Resolved]
  - Dizziness [Not Recovered/Not Resolved]
  - Palpitations [Recovered/Resolved]
  - Pain in extremity [Not Recovered/Not Resolved]
  - Peripheral swelling [Recovering/Resolving]
  - Pharyngeal inflammation [Unknown]
  - Joint effusion [Not Recovered/Not Resolved]
  - Arthralgia [Not Recovered/Not Resolved]

NARRATIVE: CASE EVENT DATE: 201710
